FAERS Safety Report 23287943 (Version 11)
Quarter: 2025Q1

REPORT INFORMATION
  Report Type: Report from Study
  Country: CA (occurrence: CA)
  Receive Date: 20231212
  Receipt Date: 20250311
  Transmission Date: 20250409
  Serious: Yes (Hospitalization, Other)
  Sender: TAKEDA
  Company Number: CA-TAKEDA-2023TUS039597

PATIENT
  Age: 56 Year
  Sex: Female

DRUGS (14)
  1. LANADELUMAB [Suspect]
     Active Substance: LANADELUMAB
     Indication: Hereditary angioedema with normal C1 esterase inhibitor
     Dosage: UNK UNK, Q2WEEKS
     Dates: start: 20230414
  2. FIRAZYR [Suspect]
     Active Substance: ICATIBANT ACETATE
     Indication: Hereditary angioedema
  3. FIRAZYR [Suspect]
     Active Substance: ICATIBANT ACETATE
     Indication: Hereditary angioedema with normal C1 esterase inhibitor
  4. FIRAZYR [Suspect]
     Active Substance: ICATIBANT ACETATE
  5. CORTEF [Concomitant]
     Active Substance: HYDROCORTISONE
  6. CALCIUM CARBONATE [Concomitant]
     Active Substance: CALCIUM CARBONATE
  7. BREO ELLIPTA [Concomitant]
     Active Substance: FLUTICASONE FUROATE\VILANTEROL TRIFENATATE
  8. QVAR [Concomitant]
     Active Substance: BECLOMETHASONE DIPROPIONATE
  9. VENTOLIN [Concomitant]
     Active Substance: ALBUTEROL SULFATE
  10. RUPATADINE FUMARATE [Concomitant]
     Active Substance: RUPATADINE FUMARATE
     Dosage: 10 MILLIGRAM, QD
  11. FLEXERIL [Concomitant]
     Active Substance: CYCLOBENZAPRINE HYDROCHLORIDE
  12. HYDROMORPHONE [Concomitant]
     Active Substance: HYDROMORPHONE
  13. CORTISONE [Concomitant]
     Active Substance: CORTISONE
     Indication: Adrenal insufficiency
  14. CYKLOKAPRON [Concomitant]
     Active Substance: TRANEXAMIC ACID

REACTIONS (24)
  - Asthenia [Recovering/Resolving]
  - Fatigue [Recovering/Resolving]
  - Upper respiratory tract infection [Recovered/Resolved]
  - Hereditary angioedema [Recovered/Resolved]
  - Depression [Not Recovered/Not Resolved]
  - Stress [Not Recovered/Not Resolved]
  - Insurance issue [Not Recovered/Not Resolved]
  - Impaired healing [Not Recovered/Not Resolved]
  - Insomnia [Recovering/Resolving]
  - Family stress [Unknown]
  - Road traffic accident [Not Recovered/Not Resolved]
  - Ligament sprain [Unknown]
  - Post procedural complication [Unknown]
  - Auriculotemporal syndrome [Unknown]
  - Concussion [Not Recovered/Not Resolved]
  - Cognitive disorder [Not Recovered/Not Resolved]
  - Memory impairment [Not Recovered/Not Resolved]
  - Off label use [Unknown]
  - Post-traumatic stress disorder [Unknown]
  - Sexual harassment [Unknown]
  - Aggression [Unknown]
  - Gene mutation [Unknown]
  - Respiratory tract infection [Recovered/Resolved]
  - Vomiting [Recovered/Resolved]

NARRATIVE: CASE EVENT DATE: 20231114
